FAERS Safety Report 8693157 (Version 2)
Quarter: 2014Q1

REPORT INFORMATION
  Report Type: Report from Study
  Country: PL (occurrence: PL)
  Receive Date: 20120730
  Receipt Date: 20140131
  Transmission Date: 20141002
  Serious: Yes (Death)
  Sender: FDA-Public Use
  Company Number: PL-GLAXOSMITHKLINE-Z0016056A

PATIENT
  Age: 59 Year
  Sex: Male
  Weight: 98 kg

DRUGS (20)
  1. OFATUMUMAB [Suspect]
     Indication: CHRONIC LYMPHOCYTIC LEUKAEMIA
     Route: 042
     Dates: start: 20120509, end: 20120606
  2. BENDAMUSTINE [Suspect]
     Indication: CHRONIC LYMPHOCYTIC LEUKAEMIA
     Dosage: 70MGM2 CYCLIC
     Route: 042
     Dates: start: 20120509, end: 20120607
  3. LOSEC [Concomitant]
     Indication: GASTRITIS PROPHYLAXIS
     Dosage: 40MG PER DAY
     Route: 042
     Dates: start: 20120627, end: 20120724
  4. KETONAL [Concomitant]
     Indication: PAIN
     Dosage: 100MG AS REQUIRED
     Route: 042
     Dates: start: 20120625, end: 20120709
  5. KETONAL [Concomitant]
     Indication: PAIN
     Dosage: 100MG TWICE PER DAY
     Route: 042
     Dates: start: 20120709, end: 20120724
  6. FUROSEMID [Concomitant]
     Indication: DIURETIC THERAPY
     Dosage: 40MG TWICE PER DAY
     Route: 042
     Dates: start: 20120629, end: 20120709
  7. FUROSEMID [Concomitant]
     Indication: DIURETIC THERAPY
     Dosage: 60MG TWICE PER DAY
     Route: 042
     Dates: start: 20120713, end: 20120714
  8. FUROSEMID [Concomitant]
     Indication: DIURETIC THERAPY
     Dosage: 100MG SINGLE DOSE
     Route: 042
     Dates: start: 20120715, end: 20120715
  9. FUROSEMID [Concomitant]
     Indication: DIURETIC THERAPY
     Dosage: 60MG PER DAY
     Route: 042
     Dates: start: 20120716, end: 20120724
  10. KALIPOZ [Concomitant]
     Indication: MINERAL SUPPLEMENTATION
     Dosage: 1TAB PER DAY
     Route: 048
     Dates: start: 20120707, end: 20120712
  11. MILURIT [Concomitant]
     Indication: PROPHYLAXIS
     Dosage: 300MG PER DAY
     Route: 048
     Dates: start: 20120706, end: 20120724
  12. CIPRONEX [Concomitant]
     Indication: PRODUCT USED FOR UNKNOWN INDICATION
     Dosage: 500MG TWICE PER DAY
     Route: 048
     Dates: start: 20120710, end: 20120714
  13. THIOCODIN [Concomitant]
     Indication: ANTITUSSIVE THERAPY
     Dosage: 630MG SINGLE DOSE
     Route: 048
     Dates: start: 20120723, end: 20120723
  14. PARACETAMOL [Concomitant]
     Indication: PROPHYLAXIS
     Dosage: 1000MG SINGLE DOSE
     Route: 042
     Dates: start: 20120723, end: 20120723
  15. PARACETAMOL [Concomitant]
     Indication: PROPHYLAXIS
     Dosage: 1000MG SINGLE DOSE
     Route: 042
     Dates: start: 20120724, end: 20120724
  16. HYDROCORTISON [Concomitant]
     Indication: PROPHYLAXIS
     Dosage: 100MG SINGLE DOSE
     Route: 042
     Dates: start: 20120723, end: 20120724
  17. HYDROCORTISON [Concomitant]
     Indication: PROPHYLAXIS
     Dosage: 200MG SINGLE DOSE
     Route: 042
     Dates: start: 20120722, end: 20120722
  18. OXAZEPAM [Concomitant]
     Indication: SEDATION
     Dosage: 10MG SINGLE DOSE
     Route: 048
     Dates: start: 20120722, end: 20120722
  19. THEOPHYLLINUM [Concomitant]
     Indication: INHALATION THERAPY
     Dosage: 250MG SINGLE DOSE
     Route: 042
     Dates: start: 20120723, end: 20120723
  20. MGSO4 [Concomitant]
     Indication: PRODUCT USED FOR UNKNOWN INDICATION
     Dosage: 2G SINGLE DOSE
     Route: 042
     Dates: start: 20120723, end: 20120723

REACTIONS (2)
  - Pneumonia [Fatal]
  - Haemolytic anaemia [Fatal]
